FAERS Safety Report 5024629-5 (Version None)
Quarter: 2006Q2

REPORT INFORMATION
  Report Type: 
  Country: None (occurrence: None)
  Receive Date: 20060427
  Receipt Date: 20051006
  Transmission Date: 20061013
  Serious: Yes (Death)
  Sender: FDA-Public Use
  Company Number: US-JNJFOC-20051001771

PATIENT
  Sex: Male

DRUGS (1)
  1. RAZADYNE ER [Suspect]
     Indication: DRUG USE FOR UNKNOWN INDICATION
     Dosage: 1 IN 1 DAY, ORAL
     Route: 048
     Dates: start: 20050101, end: 20050101

REACTIONS (1)
  - MYOCARDIAL INFARCTION [None]
